FAERS Safety Report 8348919-3 (Version None)
Quarter: 2012Q2

REPORT INFORMATION
  Report Type: 
  Country: None (occurrence: None)
  Receive Date: 20120508
  Receipt Date: 20120423
  Transmission Date: 20120825
  Serious: Yes (Other)
  Sender: FDA-Public Use
  Company Number: 2012P1012631

PATIENT
  Age: 68 Year
  Sex: Male
  Weight: 74.8435 kg

DRUGS (11)
  1. MAGNESIUM OXIDE [Concomitant]
  2. CARVEDILOL [Concomitant]
  3. PRILOSEC [Concomitant]
  4. SIMVASTATIN [Concomitant]
  5. WARFARIN SODIUM [Suspect]
     Indication: THROMBOSIS
     Dosage: 2.5 MG;QD;PO    1.25 MG;BIW;PO
     Route: 048
  6. WARFARIN SODIUM [Suspect]
     Indication: CEREBROVASCULAR ACCIDENT PROPHYLAXIS
     Dosage: 2.5 MG;QD;PO    1.25 MG;BIW;PO
     Route: 048
  7. WARFARIN SODIUM [Suspect]
     Indication: COAGULOPATHY
     Dosage: 2.5 MG;QD;PO    1.25 MG;BIW;PO
     Route: 048
  8. WARFARIN SODIUM [Suspect]
     Indication: CEREBROVASCULAR ACCIDENT PROPHYLAXIS
     Dates: start: 20080101
  9. WARFARIN SODIUM [Suspect]
     Indication: THROMBOSIS
     Dates: start: 20080101
  10. WARFARIN SODIUM [Suspect]
     Indication: COAGULOPATHY
     Dates: start: 20080101
  11. LOSARTAN POTASSIUM [Concomitant]

REACTIONS (5)
  - SKIN DISORDER [None]
  - STRESS [None]
  - STENT PLACEMENT [None]
  - CONFUSIONAL STATE [None]
  - AMNESIA [None]
